FAERS Safety Report 8217546-0 (Version None)
Quarter: 2012Q1

REPORT INFORMATION
  Report Type: 
  Country: None (occurrence: None)
  Receive Date: 20120305
  Receipt Date: 20111024
  Transmission Date: 20120608
  Serious: No
  Sender: FDA-Public Use
  Company Number: 1000024899

PATIENT
  Age: 90 Year
  Sex: Male

DRUGS (9)
  1. TOPROL-XL [Concomitant]
  2. DIOVAN [Concomitant]
  3. MULTIVITAMIN (MULTIVITAMIN) (MULTIVITAMIN) [Concomitant]
  4. DALIRESP [Suspect]
     Indication: CHRONIC OBSTRUCTIVE PULMONARY DISEASE
     Dosage: 500 MCG (500 MCG, 1 IN 1 D), ORAL
     Route: 048
     Dates: start: 20111021, end: 20111023
  5. TERAZOSIN (TERAZOSIN) (TERAZOSIN) [Concomitant]
  6. ADVAIR (SERETIDE) (SERETIDE) [Concomitant]
  7. ASPIRIN [Concomitant]
  8. NORVASC [Concomitant]
  9. SPIRIVA (TIOTROPIUM BROMIDE) (TIOTROPIUM BROMIDE) [Concomitant]

REACTIONS (5)
  - FREQUENT BOWEL MOVEMENTS [None]
  - MOUTH BREATHING [None]
  - OROPHARYNGEAL PAIN [None]
  - NASOPHARYNGITIS [None]
  - DYSPNOEA [None]
